FAERS Safety Report 9931218 (Version 1)
Quarter: 2014Q1

REPORT INFORMATION
  Report Type: Report from Study
  Country: US (occurrence: US)
  Receive Date: 20140228
  Receipt Date: 20140228
  Transmission Date: 20141002
  Serious: Yes (Other)
  Sender: FDA-Public Use
  Company Number: US-ROCHE-1350562

PATIENT
  Sex: Female

DRUGS (4)
  1. AVASTIN [Suspect]
     Indication: AGE-RELATED MACULAR DEGENERATION
     Dosage: OD
     Route: 050
  2. AVASTIN [Suspect]
     Indication: MACULAR SCAR
  3. BRIMONIDINE [Suspect]
     Indication: PRODUCT USED FOR UNKNOWN INDICATION
     Route: 065
  4. COMBIGAN [Concomitant]
     Indication: INTRAOCULAR PRESSURE INCREASED
     Dosage: OU
     Route: 065

REACTIONS (11)
  - Eye irritation [Unknown]
  - Visual acuity reduced [Unknown]
  - Eye pain [Unknown]
  - Headache [Unknown]
  - Amnesia [Unknown]
  - Intraocular pressure increased [Unknown]
  - Off label use [Unknown]
  - Metamorphopsia [Unknown]
  - Detachment of retinal pigment epithelium [Unknown]
  - Cystoid macular oedema [Unknown]
  - Macular scar [Unknown]
